FAERS Safety Report 6104347-2 (Version None)
Quarter: 2009Q1

REPORT INFORMATION
  Report Type: 
  Country: None (occurrence: None)
  Receive Date: 20090305
  Receipt Date: 20090224
  Transmission Date: 20090719
  Serious: Yes (Other)
  Sender: FDA-Public Use
  Company Number: DE-PFIZER INC-2009162718

PATIENT

DRUGS (2)
  1. ZOLOFT [Suspect]
     Indication: DEPRESSION
     Dosage: 100 MG/DAY
     Route: 048
     Dates: start: 20051001
  2. ZOLOFT [Suspect]
     Indication: ANXIETY DISORDER

REACTIONS (1)
  - SICCA SYNDROME [None]
